FAERS Safety Report 9076252 (Version 1)
Quarter: 2013Q1

REPORT INFORMATION
  Report Type: Report from Study
  Country: US (occurrence: US)
  Receive Date: 20130129
  Receipt Date: 20130129
  Transmission Date: 20140127
  Serious: No
  Sender: FDA-Public Use
  Company Number: US-ABBOTT-12P-163-0941080-00

PATIENT
  Age: 60 Year
  Sex: Female

DRUGS (8)
  1. HUMIRA 40 MG/0.8 ML PEN [Suspect]
     Indication: CROHN^S DISEASE
     Dates: start: 20120427
  2. SYNTHROID [Concomitant]
     Indication: BLOOD THYROID STIMULATING HORMONE DECREASED
     Dosage: 137MCG DAILY
  3. LASIX [Concomitant]
     Indication: FLUID RETENTION
     Dosage: 40MG DAILY
  4. MOBIC [Concomitant]
     Indication: ARTHRITIS
     Dosage: DAILY
  5. CYMBALTA [Concomitant]
     Indication: DEPRESSION
     Dosage: 20MG DAILY
  6. DEXILANT [Concomitant]
     Indication: GASTROOESOPHAGEAL REFLUX DISEASE
     Dosage: DAILY
  7. ALBUTEROL [Concomitant]
     Indication: CHRONIC OBSTRUCTIVE PULMONARY DISEASE
  8. ADVAIR [Concomitant]
     Indication: CHRONIC OBSTRUCTIVE PULMONARY DISEASE

REACTIONS (2)
  - Local swelling [Not Recovered/Not Resolved]
  - Chest discomfort [Not Recovered/Not Resolved]
